FAERS Safety Report 15145579 (Version 5)
Quarter: 2018Q3

REPORT INFORMATION
  Report Type: Spontaneous
  Country: DE (occurrence: DE)
  Receive Date: 20180713
  Receipt Date: 20180820
  Transmission Date: 20181010
  Serious: Yes (Hospitalization)
  Sender: FDA-Public Use
  Company Number: DE-ALLERGAN-1831225US

PATIENT
  Age: 37 Year
  Sex: Female

DRUGS (15)
  1. OPIPRAMOL [Concomitant]
     Active Substance: OPIPRAMOL
     Indication: PRODUCT USED FOR UNKNOWN INDICATION
     Dosage: UNK
     Route: 065
  2. ESCITALOPRAM OXALATE ? BP [Interacting]
     Active Substance: ESCITALOPRAM OXALATE
     Indication: DEPRESSED MOOD
     Dosage: 10 MG, QD
     Route: 065
  3. RISPERIDONE. [Interacting]
     Active Substance: RISPERIDONE
     Indication: MENTAL DISORDER
     Dosage: 0.5 MG, QD
     Route: 065
  4. ARIPIPRAZOLE. [Interacting]
     Active Substance: ARIPIPRAZOLE
     Indication: PRODUCT USED FOR UNKNOWN INDICATION
     Dosage: 5 MG, QD
     Route: 065
  5. PREGABALIN. [Concomitant]
     Active Substance: PREGABALIN
     Indication: PANIC DISORDER
  6. PREGABALIN. [Concomitant]
     Active Substance: PREGABALIN
     Indication: DEPRESSION
  7. ATORVASTATIN [Concomitant]
     Active Substance: ATORVASTATIN
     Indication: HYPERLIPIDAEMIA
     Dosage: UNK
     Route: 065
  8. RISPERIDONE. [Interacting]
     Active Substance: RISPERIDONE
     Indication: MERYCISM
     Dosage: 0.5 MG, QD
     Route: 065
  9. PREGABALIN. [Concomitant]
     Active Substance: PREGABALIN
     Indication: GENERALISED ANXIETY DISORDER
     Dosage: 100 MG, QPM
     Route: 065
  10. ESCITALOPRAM OXALATE ? BP [Suspect]
     Active Substance: ESCITALOPRAM OXALATE
     Indication: DEPRESSION
     Dosage: 20 MG, QD
     Route: 065
  11. ESCITALOPRAM OXALATE ? BP [Interacting]
     Active Substance: ESCITALOPRAM OXALATE
     Indication: GENERALISED ANXIETY DISORDER
     Dosage: 20 MG, QD
     Route: 065
  12. LORAZEPAM. [Concomitant]
     Active Substance: LORAZEPAM
     Indication: PRODUCT USED FOR UNKNOWN INDICATION
     Dosage: UNK
     Route: 065
  13. ESCITALOPRAM OXALATE ? BP [Interacting]
     Active Substance: ESCITALOPRAM OXALATE
     Indication: PANIC DISORDER
     Dosage: 15 MG, QD
     Route: 065
  14. RISPERIDONE. [Interacting]
     Active Substance: RISPERIDONE
     Indication: CONDUCT DISORDER
  15. PROMETHAZINE [Concomitant]
     Active Substance: PROMETHAZINE\PROMETHAZINE HYDROCHLORIDE
     Indication: PRODUCT USED FOR UNKNOWN INDICATION
     Dosage: UNK
     Route: 065

REACTIONS (6)
  - Respiratory tract infection [Unknown]
  - Haemorrhagic diathesis [Unknown]
  - Haematoma [Recovered/Resolved]
  - Menometrorrhagia [Recovered/Resolved]
  - Drug interaction [Unknown]
  - Sleep disorder [Unknown]
